FAERS Safety Report 24444243 (Version 2)
Quarter: 2024Q4

REPORT INFORMATION
  Report Type: Report from Study
  Country: US (occurrence: US)
  Receive Date: 20241016
  Receipt Date: 20241017
  Transmission Date: 20250115
  Serious: No
  Sender: ROCHE
  Company Number: US-ROCHE-2715501

PATIENT
  Age: 46 Year
  Sex: Male

DRUGS (10)
  1. RITUXAN [Suspect]
     Active Substance: RITUXIMAB
     Indication: Multiple sclerosis
     Dosage: 1000 MG DAY 1 AND DAY 15 THEN EVERY 4 MONTHS?100 MG/10 ML STRENGTH
     Route: 041
  2. AMPHETAMINE;DEXTROAMPHETAMINE [Concomitant]
  3. BACLOFEN [Concomitant]
     Active Substance: BACLOFEN
  4. ESCITALOPRAM [Concomitant]
     Active Substance: ESCITALOPRAM OXALATE
  5. MECLIZINE [Concomitant]
     Active Substance: MECLIZINE HYDROCHLORIDE
  6. OXYBUTYNIN [Concomitant]
     Active Substance: OXYBUTYNIN
  7. TRAZODONE [Concomitant]
     Active Substance: TRAZODONE HYDROCHLORIDE
  8. ERGOCALCIFEROL [Concomitant]
     Active Substance: ERGOCALCIFEROL
  9. METOPROLOL [Concomitant]
     Active Substance: METOPROLOL
  10. ATORVASTATIN [Concomitant]
     Active Substance: ATORVASTATIN

REACTIONS (2)
  - Off label use [Unknown]
  - No adverse event [Unknown]
